FAERS Safety Report 8828030 (Version 1)
Quarter: 2012Q4

REPORT INFORMATION
  Report Type: 
  Country: US (occurrence: US)
  Receive Date: 20121005
  Receipt Date: 20121005
  Transmission Date: 20130627
  Serious: Yes (Hospitalization)
  Sender: FDA-Public Use
  Company Number: US-BAYER-2012-101625

PATIENT
  Age: 30 Year
  Sex: Female

DRUGS (3)
  1. YAZ [Suspect]
     Dosage: UNK
     Dates: start: 20090710, end: 20090802
  2. VICODIN [Concomitant]
     Dosage: UNK
  3. PROZAC [Concomitant]
     Dosage: UNK

REACTIONS (5)
  - Pulmonary embolism [None]
  - Pulmonary infarction [None]
  - Pleural effusion [None]
  - Atelectasis [None]
  - Chest pain [None]
